FAERS Safety Report 9886431 (Version 1)
Quarter: 2014Q1

REPORT INFORMATION
  Report Type: Report from Study
  Country: BR (occurrence: BR)
  Receive Date: 20140210
  Receipt Date: 20140210
  Transmission Date: 20141002
  Serious: Yes (Hospitalization, Other)
  Sender: FDA-Public Use
  Company Number: BR-ABBVIE-14P-020-1197078-00

PATIENT
  Age: 58 Year
  Sex: Female

DRUGS (6)
  1. HUMIRA [Suspect]
     Indication: PSORIATIC ARTHROPATHY
     Route: 058
     Dates: start: 2012, end: 201311
  2. PREDNISOLONE [Suspect]
     Indication: PAIN
     Route: 048
     Dates: start: 2012
  3. PREDNISOLONE [Suspect]
     Dosage: DOSE INCREASED
     Dates: start: 201211
  4. PREDNISOLONE [Suspect]
     Dosage: DOSE LOWERED
  5. COBERINA (?) [Suspect]
     Indication: PRODUCT USED FOR UNKNOWN INDICATION
  6. OMEPRAZOLE [Concomitant]
     Indication: GASTRIC DISORDER
     Route: 048
     Dates: start: 2013

REACTIONS (7)
  - Hypertensive crisis [Recovering/Resolving]
  - Cerebrovascular accident [Recovering/Resolving]
  - Drug ineffective [Not Recovered/Not Resolved]
  - Dyspepsia [Not Recovered/Not Resolved]
  - Gastrooesophageal reflux disease [Not Recovered/Not Resolved]
  - Arthralgia [Unknown]
  - Muscle rigidity [Unknown]
